FAERS Safety Report 5296172-X (Version None)
Quarter: 2007Q2

REPORT INFORMATION
  Report Type: 
  Country: None (occurrence: None)
  Receive Date: 20070413
  Receipt Date: 20070409
  Transmission Date: 20071010
  Serious: Yes (Disabling, Other)
  Sender: FDA-Public Use
  Company Number: US-GLAXOSMITHKLINE-A0623226A

PATIENT
  Age: 52 Year
  Sex: Female

DRUGS (4)
  1. VALTREX [Suspect]
     Dosage: 1G THREE TIMES PER DAY
     Route: 048
     Dates: start: 20060213, end: 20060220
  2. PHENOBARBITAL TAB [Concomitant]
  3. VITAMINS [Concomitant]
  4. ADVIL [Concomitant]

REACTIONS (11)
  - ASTHENIA [None]
  - CONDITION AGGRAVATED [None]
  - DIZZINESS [None]
  - HEADACHE [None]
  - INSOMNIA [None]
  - NAUSEA [None]
  - PHOTOPHOBIA [None]
  - POST-TRAUMATIC HEADACHE [None]
  - PSYCHOMOTOR SEIZURES [None]
  - VERTIGO [None]
  - VESTIBULAR NEURONITIS [None]
